FAERS Safety Report 8166041-6 (Version None)
Quarter: 2012Q1

REPORT INFORMATION
  Report Type: 
  Country: None (occurrence: None)
  Receive Date: 20120227
  Receipt Date: 20110325
  Transmission Date: 20120608
  Serious: No
  Sender: FDA-Public Use
  Company Number: US-MYLANLABS-2011S1003849

PATIENT
  Sex: Female
  Weight: 55.79 kg

DRUGS (5)
  1. ORTHO TRI-CYCLEN [Concomitant]
  2. AMNESTEEM [Suspect]
     Indication: ACNE CYSTIC
     Route: 048
     Dates: start: 20101225, end: 20110214
  3. ADDERALL 5 [Suspect]
     Indication: ATTENTION DEFICIT/HYPERACTIVITY DISORDER
     Dates: end: 20110101
  4. AMNESTEEM [Suspect]
     Indication: ACNE
     Route: 048
     Dates: start: 20101225, end: 20110214
  5. ADDERALL 5 [Suspect]
     Dates: start: 20110101

REACTIONS (7)
  - DIZZINESS [None]
  - HEADACHE [None]
  - MYALGIA [None]
  - DIARRHOEA [None]
  - ABDOMINAL DISTENSION [None]
  - LIP DRY [None]
  - VISION BLURRED [None]
